FAERS Safety Report 4421169-9 (Version None)
Quarter: 2004Q3

REPORT INFORMATION
  Report Type: 
  Country: None (occurrence: None)
  Receive Date: 20040804
  Receipt Date: 20040722
  Transmission Date: 20050211
  Serious: Yes (Hospitalization)
  Sender: FDA-Public Use
  Company Number: JP-JNJFOC-20040706485

PATIENT
  Age: 53 Year
  Sex: Female
  Weight: 49 kg

DRUGS (22)
  1. REMICADE [Suspect]
     Indication: RHEUMATOID ARTHRITIS
     Dosage: 3 MG/KG, INTRAVENOUS
     Route: 042
     Dates: start: 20040626
  2. RHEUMATREX [Suspect]
     Indication: RHEUMATOID ARTHRITIS
     Dosage: 6 MG, 1 IN 1 WEEK, ORAL
     Route: 048
     Dates: start: 20040217
  3. VOLTAREN [Suspect]
     Indication: RHEUMATOID ARTHRITIS
  4. CYOTEC (MISOPROSTOL) [Suspect]
     Dosage: ORAL
     Route: 048
  5. PREDNISOLONE [Suspect]
     Indication: RHEUMATOID ARTHRITIS
     Dosage: 5 MG, ORAL
     Route: 048
  6. FARNEZONE (ALL OTHER THERAPEUTIC PRODUCTS)GEL [Concomitant]
  7. RIMATIL (BUCILLAMINE) [Concomitant]
  8. SERASTAR (INDOMETACIN) [Concomitant]
  9. STICKZENOL A (ALL OTHER THERAPEUTIC PRODUCTS) [Concomitant]
  10. INDACIN (IDOMETACIN) SUPPOSITORY [Concomitant]
  11. SURVENYL (ALL OTHER THERAPEUTIC PRODUCTS) INJECTION [Concomitant]
  12. FOLIC ACID [Concomitant]
  13. LAXOBERON (SODIUM PICOSULFATE) SOLUTION [Concomitant]
  14. SP TROACHES (ALL OTHER THERAPEUTIC PRODUCTS) [Concomitant]
  15. VITAMEDIN (VITAMEDIN CAPSULE) CAPSULES [Concomitant]
  16. CEREKINON (TRIMEBUTINE MALEATE) [Concomitant]
  17. ASPARA CA (ALL OTEHR THERAPEUTIC PRODUCTS) [Concomitant]
  18. JUVELA (TOCOPHEROL) CAPSULES [Concomitant]
  19. MAGNESIUM OXIDE (MAGNESIUM OXIDE) [Concomitant]
  20. ROCALTROL (CALCITRIOL) CAPSULES [Concomitant]
  21. OMEPRAZOLE [Concomitant]
  22. EURODIN (ESTAZOLAM) [Concomitant]

REACTIONS (1)
  - ENTERITIS [None]
